FAERS Safety Report 16670028 (Version 3)
Quarter: 2022Q2

REPORT INFORMATION
  Report Type: Report from Study
  Country: GB (occurrence: GB)
  Receive Date: 20190805
  Receipt Date: 20220524
  Transmission Date: 20220720
  Serious: Yes (Other)
  Sender: FDA-Public Use
  Company Number: GB-ROCHE-2248897

PATIENT
  Age: 47 Year
  Sex: Female

DRUGS (23)
  1. EXEMESTANE [Suspect]
     Active Substance: EXEMESTANE
     Indication: Breast cancer metastatic
     Dosage: 25 MILLIGRAM, QD
     Route: 048
     Dates: start: 20150518
  2. TRASTUZUMAB [Suspect]
     Active Substance: TRASTUZUMAB
     Indication: Breast cancer metastatic
     Dosage: 483 MILLIGRAM, Q3W
     Route: 042
     Dates: start: 20150803, end: 20150803
  3. TRASTUZUMAB [Suspect]
     Active Substance: TRASTUZUMAB
     Dosage: 600 MILLIGRAM, Q3W
     Route: 058
     Dates: start: 20150825, end: 20151117
  4. TRASTUZUMAB [Suspect]
     Active Substance: TRASTUZUMAB
     Dosage: 600 MILLIGRAM, Q3W
     Route: 042
     Dates: start: 20151217, end: 20160308
  5. TRASTUZUMAB [Suspect]
     Active Substance: TRASTUZUMAB
     Dosage: 600 MILLIGRAM, Q3W
     Route: 058
     Dates: start: 20160623
  6. PERTUZUMAB [Suspect]
     Active Substance: PERTUZUMAB
     Indication: Breast cancer metastatic
     Dosage: 840 MILLIGRAM, QD
     Route: 042
     Dates: start: 20150804
  7. PERTUZUMAB [Suspect]
     Active Substance: PERTUZUMAB
     Dosage: 420 MILLIGRAM, Q3W
     Route: 042
     Dates: start: 20150825, end: 20151117
  8. PERTUZUMAB [Suspect]
     Active Substance: PERTUZUMAB
     Dosage: 420 MILLIGRAM, Q3W
     Route: 042
     Dates: start: 20151217, end: 20160308
  9. PERTUZUMAB [Suspect]
     Active Substance: PERTUZUMAB
     Dosage: 840 MILLIGRAM, QD
     Route: 042
     Dates: start: 20160623, end: 20160623
  10. PERTUZUMAB [Suspect]
     Active Substance: PERTUZUMAB
     Dosage: 420 MILLIGRAM, Q3W
     Route: 042
     Dates: start: 20160715
  11. DOCETAXEL [Suspect]
     Active Substance: DOCETAXEL
     Indication: Breast cancer metastatic
     Dosage: 120 MILLIGRAM, Q3W
     Route: 042
     Dates: start: 20150804, end: 20151117
  12. BENZYDAMINE [Concomitant]
     Active Substance: BENZYDAMINE
     Indication: Mucosal inflammation
     Dosage: UNK
     Route: 048
     Dates: start: 201508
  13. BENZYDAMINE [Concomitant]
     Active Substance: BENZYDAMINE
     Indication: Gingival swelling
     Dosage: 60 MILLILITER, QD
     Route: 048
     Dates: start: 20150803, end: 20150817
  14. AMOXICILLIN\CLAVULANATE POTASSIUM [Concomitant]
     Active Substance: AMOXICILLIN\CLAVULANATE POTASSIUM
     Indication: Vascular device infection
     Dosage: 1875 MILLIGRAM, QD
     Route: 048
     Dates: start: 20160915
  15. CIPROFLOXACIN [Concomitant]
     Active Substance: CIPROFLOXACIN
     Indication: Vascular device infection
     Dosage: 1000 MILLIGRAM, QD
     Route: 048
     Dates: start: 20151210, end: 20151215
  16. CIPROFLOXACIN [Concomitant]
     Active Substance: CIPROFLOXACIN
     Dosage: 1000 MILLIGRAM, QD
     Route: 048
     Dates: start: 20160908
  17. DEXAMETHASONE [Concomitant]
     Active Substance: DEXAMETHASONE
     Dosage: FOR THREE DAYS EVERY 3 WEEKS
     Route: 048
     Dates: start: 20150803
  18. ACETAMINOPHEN [Concomitant]
     Active Substance: ACETAMINOPHEN
     Indication: Device related infection
     Dosage: 2000 MILLIGRAM, QD
     Route: 048
     Dates: start: 20141211, end: 20141224
  19. ACETAMINOPHEN [Concomitant]
     Active Substance: ACETAMINOPHEN
     Dosage: 4 GRAM, QD
     Route: 048
     Dates: start: 20160916
  20. IBANDRONIC ACID [Concomitant]
     Active Substance: IBANDRONIC ACID
     Indication: Metastases to bone
     Dosage: 50 MILLIGRAM, QD
     Route: 048
     Dates: start: 20150518
  21. RAMIPRIL [Concomitant]
     Active Substance: RAMIPRIL
     Indication: Ejection fraction decreased
     Dosage: UNK
     Route: 048
     Dates: start: 201603
  22. DENOSUMAB [Concomitant]
     Active Substance: DENOSUMAB
     Dosage: 120 MILLIGRAM, MONTHLY
     Route: 058
  23. MEROPENEM [Concomitant]
     Active Substance: MEROPENEM
     Dosage: 3 GRAM, QD
     Route: 042
     Dates: start: 20160918

REACTIONS (3)
  - Osteonecrosis of jaw [Not Recovered/Not Resolved]
  - Condition aggravated [Recovered/Resolved]
  - Ejection fraction decreased [Recovered/Resolved]

NARRATIVE: CASE EVENT DATE: 20180201
